FAERS Safety Report 8455271-1 (Version None)
Quarter: 2012Q2

REPORT INFORMATION
  Report Type: 
  Country: None (occurrence: None)
  Receive Date: 20120621
  Receipt Date: 20120612
  Transmission Date: 20120825
  Serious: Yes (Hospitalization)
  Sender: FDA-Public Use
  Company Number: FR-NOVOPROD-337968

PATIENT
  Age: 36 Year
  Sex: Female
  Weight: 97 kg

DRUGS (7)
  1. VICTOZA [Suspect]
     Dosage: 1.2 MG, QD
     Route: 058
     Dates: start: 20110913
  2. CLONAZEPAM [Concomitant]
     Dosage: 5 DROPS, QD
     Route: 048
     Dates: start: 20090101
  3. NOVONORM [Concomitant]
     Dosage: 3 MG, QD
     Route: 048
     Dates: start: 20060101
  4. VICTOZA [Suspect]
     Indication: TYPE 2 DIABETES MELLITUS
     Dosage: 1.2 MG, QD
     Route: 058
     Dates: start: 20110404, end: 20110913
  5. PHENOBARBITAL TAB [Concomitant]
     Dosage: 50 MG, QD
     Route: 048
     Dates: start: 20090101
  6. LAMICTAL [Concomitant]
     Dosage: TWICE/PO
     Route: 048
     Dates: start: 20060101
  7. METFORMIN HCL [Concomitant]
     Dosage: 700 MG, QD
     Route: 048
     Dates: start: 20060101

REACTIONS (2)
  - EPILEPSY [None]
  - DISEASE RECURRENCE [None]
